FAERS Safety Report 13429092 (Version 2)
Quarter: 2017Q3

REPORT INFORMATION
  Report Type: Spontaneous
  Country: FR (occurrence: FR)
  Receive Date: 20170411
  Receipt Date: 20170731
  Transmission Date: 20171127
  Serious: Yes (Death, Hospitalization, Other)
  Sender: FDA-Public Use
  Company Number: FR-ELI_LILLY_AND_COMPANY-FR201704001231

PATIENT
  Age: 44 Year
  Sex: Female

DRUGS (3)
  1. CISPLATIN. [Concomitant]
     Active Substance: CISPLATIN
     Indication: LUNG ADENOCARCINOMA
     Dosage: UNK UNK, UNKNOWN
     Route: 065
  2. AVASTIN [Suspect]
     Active Substance: BEVACIZUMAB
     Indication: LUNG ADENOCARCINOMA
     Dosage: 450 MG, UNKNOWN
     Route: 042
     Dates: end: 20170111
  3. ALIMTA [Suspect]
     Active Substance: PEMETREXED DISODIUM
     Indication: LUNG ADENOCARCINOMA
     Dosage: 550 MG, CYCLICAL
     Route: 042
     Dates: end: 20170111

REACTIONS (18)
  - Gastrointestinal toxicity [Unknown]
  - Histiocytosis haematophagic [Unknown]
  - Mucosal inflammation [Unknown]
  - Febrile bone marrow aplasia [Fatal]
  - Renal failure [Not Recovered/Not Resolved]
  - Mucosal haemorrhage [Unknown]
  - Thrombocytopenia [Unknown]
  - Dehydration [Unknown]
  - Abdominal pain [Unknown]
  - Stenotrophomonas sepsis [Fatal]
  - Epistaxis [Unknown]
  - Bronchitis [Unknown]
  - Asthenia [Unknown]
  - Stomatitis [Unknown]
  - Hypophagia [Unknown]
  - Enterocolitis bacterial [Fatal]
  - Anaemia [Unknown]
  - Diarrhoea [Unknown]

NARRATIVE: CASE EVENT DATE: 201701
